FAERS Safety Report 7690663-X (Version None)
Quarter: 2011Q3

REPORT INFORMATION
  Report Type: 
  Country: None (occurrence: None)
  Receive Date: 20110817
  Receipt Date: 20110817
  Transmission Date: 20111222
  Serious: Yes (Hospitalization)
  Sender: FDA-Public Use
  Company Number: None

PATIENT
  Age: 62 Year
  Sex: Male
  Weight: 78 kg

DRUGS (10)
  1. DIGOXIN [Concomitant]
  2. ATROVENT [Concomitant]
  3. GABAPENTIN [Concomitant]
  4. COREG [Concomitant]
  5. DECADRON [Concomitant]
  6. DEPAKOTE ER [Concomitant]
  7. DILTIAZEM [Concomitant]
  8. DILANTIN [Concomitant]
  9. LEVOFLOXACIN [Suspect]
     Indication: SEPSIS
     Dosage: 500MG Q24HR IV
     Route: 042
     Dates: start: 20110727
  10. XOPENEX [Concomitant]

REACTIONS (1)
  - STEVENS-JOHNSON SYNDROME [None]
